FAERS Safety Report 6550306-5 (Version None)
Quarter: 2010Q1

REPORT INFORMATION
  Report Type: 
  Country: None (occurrence: None)
  Receive Date: 20100125
  Receipt Date: 20100113
  Transmission Date: 20100710
  Serious: Yes (Other)
  Sender: FDA-Public Use
  Company Number: US-PFIZER INC-2008077074

PATIENT
  Sex: Male
  Weight: 87.089 kg

DRUGS (3)
  1. CHANTIX [Suspect]
     Indication: SMOKING CESSATION THERAPY
     Dosage: 0.5 MG, 1X/DAY
     Dates: start: 20080101
  2. CHANTIX [Suspect]
     Dosage: 0.5 MG, UNK
     Dates: start: 20091226
  3. CHANTIX [Suspect]
     Dosage: UNK

REACTIONS (3)
  - ABDOMINAL PAIN UPPER [None]
  - ARTERIAL OCCLUSIVE DISEASE [None]
  - DIARRHOEA [None]
